FAERS Safety Report 10282035 (Version 1)
Quarter: 2014Q3

REPORT INFORMATION
  Report Type: Report from Study
  Country: BR (occurrence: BR)
  Receive Date: 20140707
  Receipt Date: 20140707
  Transmission Date: 20150326
  Serious: Yes (Death, Other)
  Sender: FDA-Public Use
  Company Number: BR-ABBVIE-14P-020-1256313-00

PATIENT
  Sex: Female

DRUGS (1)
  1. HUMIRA [Suspect]
     Active Substance: ADALIMUMAB
     Indication: RHEUMATOID ARTHRITIS

REACTIONS (7)
  - Peripheral ischaemia [Fatal]
  - Infection [Fatal]
  - Multi-organ failure [Fatal]
  - Skin discolouration [Fatal]
  - Thrombosis [Fatal]
  - Localised infection [Fatal]
  - Erythema [Recovered/Resolved]

NARRATIVE: CASE EVENT DATE: 2008
